FAERS Safety Report 4334913-6 (Version None)
Quarter: 2004Q2

REPORT INFORMATION
  Report Type: 
  Country: None (occurrence: None)
  Receive Date: 20040408
  Receipt Date: 20040329
  Transmission Date: 20050107
  Serious: Yes (Other)
  Sender: FDA-Public Use
  Company Number: JP-MERCK-0404USA00039

PATIENT
  Age: 64 Year
  Sex: Male

DRUGS (6)
  1. [THERAPY UNSPECIFIED] [Concomitant]
     Route: 065
  2. [THERAPY UNSPECIFIED] [Concomitant]
     Route: 065
  3. NORVASC [Concomitant]
     Route: 065
  4. PEPCID [Suspect]
     Route: 042
     Dates: start: 20040322
  5. PERDIPINE [Concomitant]
     Route: 042
     Dates: start: 20040322
  6. ALEVIATIN [Concomitant]
     Route: 065

REACTIONS (2)
  - BLOOD CREATININE INCREASED [None]
  - RENAL IMPAIRMENT [None]
